FAERS Safety Report 9207897 (Version 5)
Quarter: 2013Q4

REPORT INFORMATION
  Report Type: Spontaneous
  Country: US (occurrence: US)
  Receive Date: 20130403
  Receipt Date: 20131209
  Transmission Date: 20140711
  Serious: Yes (Hospitalization, Disabling, Other)
  Sender: FDA-Public Use
  Company Number: US-009507513-1303USA012841

PATIENT
  Sex: Female
  Weight: 137.87 kg

DRUGS (2)
  1. NUVARING [Suspect]
     Indication: CONTRACEPTION
     Dosage: UNK
     Route: 067
     Dates: start: 201010, end: 201103
  2. SYNTHROID [Concomitant]
     Indication: PRODUCT USED FOR UNKNOWN INDICATION
     Dosage: UNK
     Dates: start: 2000

REACTIONS (13)
  - Leukocytosis [Unknown]
  - Pulmonary embolism [Unknown]
  - Pulmonary infarction [Unknown]
  - Deep vein thrombosis [Unknown]
  - Gastric banding reversal [Unknown]
  - Dyspnoea [Unknown]
  - Asthma [Unknown]
  - Impaired gastric emptying [Unknown]
  - Vertigo [Unknown]
  - Hypersensitivity [Unknown]
  - Hypoxia [Unknown]
  - Gastrooesophageal reflux disease [Unknown]
  - Hepatic steatosis [Unknown]
